FAERS Safety Report 11211456 (Version 4)
Quarter: 2016Q2

REPORT INFORMATION
  Report Type: Report from Study
  Country: US (occurrence: US)
  Receive Date: 20150623
  Receipt Date: 20160427
  Transmission Date: 20160815
  Serious: No
  Sender: FDA-Public Use
  Company Number: US-AMGEN-USASP2015059915

PATIENT
  Age: 32 Year
  Sex: Female

DRUGS (2)
  1. ENBREL [Suspect]
     Active Substance: ETANERCEPT
     Indication: PSORIATIC ARTHROPATHY
     Dosage: 50 MG, QWK
     Route: 065
     Dates: start: 2014
  2. ENBREL [Suspect]
     Active Substance: ETANERCEPT
     Indication: PSORIASIS

REACTIONS (19)
  - Anxiety [Not Recovered/Not Resolved]
  - Local swelling [Unknown]
  - Arthritis [Not Recovered/Not Resolved]
  - Nail disorder [Unknown]
  - Tearfulness [Unknown]
  - Injection site pain [Unknown]
  - Onychoclasis [Unknown]
  - Disturbance in attention [Unknown]
  - Skin discolouration [Unknown]
  - Hypoacusis [Unknown]
  - Fear of injection [Not Recovered/Not Resolved]
  - Skin disorder [Not Recovered/Not Resolved]
  - Fear of injection [Unknown]
  - Joint swelling [Not Recovered/Not Resolved]
  - Gait disturbance [Not Recovered/Not Resolved]
  - Underdose [Unknown]
  - Device issue [Not Recovered/Not Resolved]
  - Limb discomfort [Unknown]
  - Drug ineffective [Unknown]

NARRATIVE: CASE EVENT DATE: 2015
